FAERS Safety Report 6413128-1 (Version None)
Quarter: 2009Q4

REPORT INFORMATION
  Report Type: 
  Country: None (occurrence: None)
  Receive Date: 20091026
  Receipt Date: 20091023
  Transmission Date: 20100525
  Serious: Yes (Death)
  Sender: FDA-Public Use
  Company Number: US-B.I. PHARMACEUTICALS,INC./RIDGEFIELD-2009-BP-12338BP

PATIENT
  Sex: Female
  Weight: 123.6 kg

DRUGS (4)
  1. AGGRENOX [Suspect]
     Indication: TRANSIENT ISCHAEMIC ATTACK
  2. ENOXAPARIN SODIUM [Suspect]
     Indication: KNEE ARTHROPLASTY
  3. MEDICATION NOT OTHERWISE SPECIFIED [Concomitant]
     Indication: BLOOD CHOLESTEROL
  4. ZOLOFT [Concomitant]
     Indication: DEPRESSION

REACTIONS (4)
  - APNOEA [None]
  - DRUG INEFFECTIVE [None]
  - LOSS OF CONSCIOUSNESS [None]
  - PULMONARY EMBOLISM [None]
